FAERS Safety Report 23545470 (Version 14)
Quarter: 2025Q4

REPORT INFORMATION
  Report Type: Spontaneous
  Country: US (occurrence: US)
  Receive Date: 20240220
  Receipt Date: 20251021
  Transmission Date: 20260117
  Serious: Yes (Other)
  Sender: PFIZER
  Company Number: US-PFIZER INC-PV202400023739

PATIENT
  Age: 61 Year
  Sex: Female

DRUGS (3)
  1. IBRANCE [Suspect]
     Active Substance: PALBOCICLIB
     Indication: Breast cancer stage IV
     Dosage: 100 MG, CYCLIC (21 DAYS ON, 7 DAYS OFF)/1 DAILY DAY 1- 21 OFF 7 THEN REPEAT
  2. IBRANCE [Suspect]
     Active Substance: PALBOCICLIB
     Indication: Breast cancer metastatic
     Dosage: 125 MG
     Dates: start: 20250715, end: 20250715
  3. IBRANCE [Suspect]
     Active Substance: PALBOCICLIB
     Dosage: 100 MG
     Dates: start: 20250716, end: 2025

REACTIONS (7)
  - Toe operation [Unknown]
  - Endodontic procedure [Unknown]
  - Tooth fracture [Unknown]
  - Intentional product use issue [Unknown]
  - Dysphonia [Unknown]
  - Infection [Unknown]
  - Decreased immune responsiveness [Unknown]

NARRATIVE: CASE EVENT DATE: 20250715
